FAERS Safety Report 8372104-2 (Version None)
Quarter: 2012Q2

REPORT INFORMATION
  Report Type: 
  Country: None (occurrence: None)
  Receive Date: 20120521
  Receipt Date: 20120515
  Transmission Date: 20120825
  Serious: Yes (Other)
  Sender: FDA-Public Use
  Company Number: US-AMGEN-USASP2012030507

PATIENT
  Sex: Female

DRUGS (1)
  1. NEULASTA [Suspect]
     Indication: NEUTROPENIA

REACTIONS (4)
  - DECREASED ACTIVITY [None]
  - ALOPECIA [None]
  - LABORATORY TEST ABNORMAL [None]
  - GENERAL PHYSICAL HEALTH DETERIORATION [None]
